FAERS Safety Report 12896808 (Version 6)
Quarter: 2017Q1

REPORT INFORMATION
  Report Type: Report from Study
  Country: CZ (occurrence: CZ)
  Receive Date: 20161031
  Receipt Date: 20170221
  Transmission Date: 20170428
  Serious: Yes (Death, Hospitalization, Other)
  Sender: FDA-Public Use
  Company Number: CZ-PFIZER INC-2016495330

PATIENT
  Age: 62 Year
  Sex: Female
  Weight: 62 kg

DRUGS (3)
  1. PALBOCICLIB [Suspect]
     Active Substance: PALBOCICLIB
     Indication: BREAST CANCER
     Dosage: 100 MG, 1X/DAY
     Route: 048
     Dates: start: 20161010
  2. FASLODEX [Concomitant]
     Active Substance: FULVESTRANT
     Indication: BREAST CANCER
     Dosage: 500 MG, MONTHLY, ONCE MONTHLY
     Route: 048
     Dates: start: 20160715, end: 20161022
  3. PALBOCICLIB [Suspect]
     Active Substance: PALBOCICLIB
     Dosage: 100 MG, CYCLIC (21 DAYS FOLLOWED BY 7 DAYS OFF THERAPY TO COMPRISE A COMPLETE CYCLE OF 28 DAYS)
     Route: 048
     Dates: end: 20161021

REACTIONS (7)
  - Hepatotoxicity [Recovering/Resolving]
  - Neoplasm progression [Fatal]
  - Neutropenia [Recovered/Resolved]
  - Thrombocytopenia [Unknown]
  - Anaemia [Unknown]
  - White blood cell count increased [Unknown]
  - White blood cell count decreased [Recovered/Resolved]

NARRATIVE: CASE EVENT DATE: 20161010
